FAERS Safety Report 11095783 (Version 1)
Quarter: 2015Q2

REPORT INFORMATION
  Report Type: Report from Study
  Country: BR (occurrence: BR)
  Receive Date: 20150507
  Receipt Date: 20150507
  Transmission Date: 20150821
  Serious: Yes (Other)
  Sender: FDA-Public Use
  Company Number: PHHY2015BR050709

PATIENT
  Age: 75 Year
  Sex: Female
  Weight: 89 kg

DRUGS (2)
  1. EXFORGE HCT [Suspect]
     Active Substance: AMLODIPINE BESYLATE\HYDROCHLOROTHIAZIDE\VALSARTAN
     Indication: HYPERTENSION
     Dosage: 1 DF (160+12,5+5MG), QD (IN THE MORNING)
     Route: 065
     Dates: start: 2013
  2. DIOVAN AMLO FIX [Suspect]
     Active Substance: AMLODIPINE\VALSARTAN
     Indication: BLOOD PRESSURE
     Dosage: 1 DF (160+5MG), QD (AT NIGHT)
     Route: 065
     Dates: start: 2013

REACTIONS (8)
  - Spinal pain [Recovering/Resolving]
  - Affective disorder [Recovering/Resolving]
  - Spinal cord disorder [Recovering/Resolving]
  - Blood pressure abnormal [Recovering/Resolving]
  - Fall [Recovering/Resolving]
  - Hearing impaired [Recovering/Resolving]
  - Visual impairment [Recovering/Resolving]
  - Pain [Recovering/Resolving]

NARRATIVE: CASE EVENT DATE: 20130708
